FAERS Safety Report 24971586 (Version 1)
Quarter: 2025Q1

REPORT INFORMATION
  Report Type: Spontaneous
  Country: US (occurrence: None)
  Receive Date: 20250214
  Receipt Date: 20250214
  Transmission Date: 20250409
  Serious: Yes (Life-Threatening)
  Sender: FDA-CTU
  Company Number: None

PATIENT
  Age: 7 Year
  Sex: Male
  Weight: 18.4 kg

DRUGS (1)
  1. CEFTRIAXONE AND DEXTROSE [Suspect]
     Active Substance: CEFTRIAXONE SODIUM
     Indication: Antibiotic therapy
     Route: 042
     Dates: start: 20250128, end: 20250128

REACTIONS (3)
  - Cough [None]
  - Urticaria [None]
  - Throat tightness [None]

NARRATIVE: CASE EVENT DATE: 20250128
